FAERS Safety Report 15918843 (Version 2)
Quarter: 2019Q1

REPORT INFORMATION
  Report Type: Report from Study
  Country: US (occurrence: US)
  Receive Date: 20190205
  Receipt Date: 20190206
  Transmission Date: 20190417
  Serious: No
  Sender: FDA-Public Use
  Company Number: US-ROCHE-2257927

PATIENT
  Sex: Male

DRUGS (3)
  1. OCREVUS [Suspect]
     Active Substance: OCRELIZUMAB
     Indication: RELAPSING MULTIPLE SCLEROSIS
     Dosage: HALF DOSE ;ONGOING: YES?DAY 1 REPEAT ON DAY 16;INFUSE 300MG 1 VIAL
     Route: 065
     Dates: start: 20180102
  2. TECFIDERA [Concomitant]
     Active Substance: DIMETHYL FUMARATE
  3. OCREVUS [Suspect]
     Active Substance: OCRELIZUMAB
     Dosage: 6 MOTHS AFTER DAY 16;INFUSE 300MG 2 VIAL
     Route: 065

REACTIONS (1)
  - Nasopharyngitis [Recovered/Resolved]
